FAERS Safety Report 16263281 (Version 1)
Quarter: 2019Q2

REPORT INFORMATION
  Report Type: Spontaneous
  Country: NL (occurrence: NL)
  Receive Date: 20190502
  Receipt Date: 20190502
  Transmission Date: 20190711
  Serious: Yes (Hospitalization)
  Sender: FDA-Public Use
  Company Number: NL-TEVA-2019-NL-1044818

PATIENT
  Age: 78 Year
  Sex: Male
  Weight: 97 kg

DRUGS (8)
  1. ATORVASTATINE TABLET 40MG [Concomitant]
     Active Substance: ATORVASTATIN
     Dosage: 40 MILLIGRAM DAILY; 1 X PER DAY 1 PIECE
  2. SALBUTAMOL AEROSOL 100UG/DO 200DO INHALATOR [Concomitant]
     Dosage: IF NECESSARY 2 X PER DAY 1 DOSE
  3. TOLBUTAMIDE TABLET  500MG [Concomitant]
     Dosage: 2 X PER DAY 1 PIECE, 500MILLIGRAM, 12HOURS
  4. METFORMIN [Concomitant]
     Active Substance: METFORMIN HYDROCHLORIDE
     Dosage: 2 X PER DAY 1 PIECE, 500MILLIGRAM, 12HOURS
  5. LISINOPRIL TABLET, 30 MG (MILLIGRAM)LISINOPRIL TABLET 30MG [Suspect]
     Active Substance: LISINOPRIL
     Indication: HYPERTENSION
     Dosage: 30 MILLIGRAM DAILY;
     Dates: start: 20180207, end: 20190312
  6. RIVAROXABAN TABLET 20MG [Concomitant]
     Active Substance: RIVAROXABAN
     Dosage: 20 MILLIGRAM DAILY; 1 X PER DAY 1 PIECE
  7. METOPROLOL TABLET MGA  50MG (SUCCINAAT [Concomitant]
     Dosage: 50 MILLIGRAM DAILY; 1 X PER DAY 1 PIECE
  8. PANTOPRAZOL TABLET MSR 40MG [Concomitant]
     Active Substance: PANTOPRAZOLE SODIUM
     Dosage: 40 MILLIGRAM DAILY; 1  PER DAY 1 PIECE

REACTIONS (1)
  - Renal failure [Recovered/Resolved]

NARRATIVE: CASE EVENT DATE: 20190312
